FAERS Safety Report 8492561-0 (Version None)
Quarter: 2012Q3

REPORT INFORMATION
  Report Type: 
  Country: None (occurrence: None)
  Receive Date: 20120706
  Receipt Date: 20120628
  Transmission Date: 20120928
  Serious: No
  Sender: FDA-Public Use
  Company Number: BR-B.I. PHARMACEUTICALS,INC./RIDGEFIELD-2012-BR-00193BR

PATIENT
  Sex: Female
  Weight: 72 kg

DRUGS (5)
  1. NPH INSULIN [Concomitant]
     Indication: TYPE 2 DIABETES MELLITUS
     Dates: start: 19900101
  2. TRAYENTA [Suspect]
     Dosage: 5 MG
     Route: 048
     Dates: start: 20120501
  3. ALENIA [Concomitant]
     Indication: ASTHMA
     Dates: start: 20080101, end: 20120401
  4. TRAYENTA [Suspect]
     Indication: TYPE 2 DIABETES MELLITUS
     Dosage: 5 MG
     Route: 048
     Dates: start: 20111101, end: 20120226
  5. LEVOTHYROXINE SODIUM [Concomitant]
     Indication: THYROID DISORDER
     Dates: start: 19900101

REACTIONS (4)
  - URTICARIA [None]
  - HYPERGLYCAEMIA [None]
  - HYPERSENSITIVITY [None]
  - ASTHMA [None]
